FAERS Safety Report 21583461 (Version 1)
Quarter: 2022Q4

REPORT INFORMATION
  Report Type: Spontaneous
  Country: US (occurrence: US)
  Receive Date: 20221111
  Receipt Date: 20221111
  Transmission Date: 20230113
  Serious: Yes (Other)
  Sender: FDA-Public Use
  Company Number: US-drreddys-SPO/USA/22/0156894

PATIENT
  Age: 18 Year

DRUGS (2)
  1. ZENATANE [Suspect]
     Active Substance: ISOTRETINOIN
     Indication: Product used for unknown indication
     Dosage: RMA ISSUE DATE: 14 DECEMBER 2020 04:50:37 PM, 09 FEBRUARY 2021 02:21:53 PM, 08 FEBRUARY 2022 08:27:2
  2. ZENATANE [Suspect]
     Active Substance: ISOTRETINOIN
     Dosage: RMA ISSUE DATE: 17 APRIL 2020 01:20:03 PM, 09 JANUARY 2021 09:25:30 AM, 26 MARCH 2022 08:34:43 AM, 0

REACTIONS (1)
  - Idiopathic intracranial hypertension [Unknown]
